FAERS Safety Report 21017133 (Version 2)
Quarter: 2022Q3

REPORT INFORMATION
  Report Type: Report from Study
  Country: PE (occurrence: PE)
  Receive Date: 20220628
  Receipt Date: 20220710
  Transmission Date: 20221027
  Serious: Yes (Hospitalization)
  Sender: FDA-Public Use
  Company Number: PE-BIOGEN-2022BI01134895

PATIENT
  Age: 28 Year
  Sex: Male
  Weight: 84 kg

DRUGS (1)
  1. TYSABRI [Suspect]
     Active Substance: NATALIZUMAB
     Indication: Relapsing multiple sclerosis
     Route: 050
     Dates: start: 20200826

REACTIONS (4)
  - Peritonitis [Recovered/Resolved]
  - Complicated appendicitis [Recovered/Resolved]
  - Hepatic steatosis [Recovered/Resolved]
  - Arthralgia [Recovered/Resolved]

NARRATIVE: CASE EVENT DATE: 20220608
